FAERS Safety Report 26201806 (Version 1)
Quarter: 2025Q4

REPORT INFORMATION
  Report Type: Report from Study
  Country: US (occurrence: US)
  Receive Date: 20251226
  Receipt Date: 20251226
  Transmission Date: 20260118
  Serious: Yes (Other)
  Sender: ABBVIE
  Company Number: US-ABBVIE-6477245

PATIENT
  Age: 48 Year
  Sex: Male

DRUGS (1)
  1. SKYRIZI [Suspect]
     Active Substance: RISANKIZUMAB-RZAA
     Indication: Crohn^s disease
     Route: 058
     Dates: start: 20250221

REACTIONS (3)
  - Cerebrovascular accident [Recovered/Resolved with Sequelae]
  - Dairy intolerance [Recovering/Resolving]
  - Inflammation [Recovered/Resolved]

NARRATIVE: CASE EVENT DATE: 20250101
